FAERS Safety Report 6035823-9 (Version None)
Quarter: 2009Q1

REPORT INFORMATION
  Report Type: 
  Country: None (occurrence: None)
  Receive Date: 20090113
  Receipt Date: 20090107
  Transmission Date: 20090719
  Serious: Yes (Other)
  Sender: FDA-Public Use
  Company Number: US-ABBOTT-09P-163-0496202-00

PATIENT
  Sex: Female
  Weight: 69.008 kg

DRUGS (3)
  1. SYNTHROID [Suspect]
     Indication: THYROID HORMONE REPLACEMENT THERAPY
     Dosage: NOT AVAILABLE AT THIS TIME PER CONSUMER
     Dates: start: 19700101
  2. INDOMETHACIN [Suspect]
     Indication: GOUT
  3. COLCHICINE [Concomitant]
     Indication: GOUT

REACTIONS (8)
  - AFFECT LABILITY [None]
  - BLOOD PRESSURE FLUCTUATION [None]
  - GOUT [None]
  - INCORRECT DOSE ADMINISTERED [None]
  - JOINT SWELLING [None]
  - KNEE ARTHROPLASTY [None]
  - PALPITATIONS [None]
  - WEIGHT DECREASED [None]
